FAERS Safety Report 6030825-0 (Version None)
Quarter: 2009Q1

REPORT INFORMATION
  Report Type: 
  Country: None (occurrence: None)
  Receive Date: 20090107
  Receipt Date: 20080825
  Transmission Date: 20090719
  Serious: Yes (Other)
  Sender: FDA-Public Use
  Company Number: AT-GENENTECH-275022

PATIENT

DRUGS (7)
  1. MABTHERA [Suspect]
     Indication: MANTLE CELL LYMPHOMA
     Dosage: UNK
  2. CYCLOPHOSPHAMIDE [Concomitant]
     Indication: MANTLE CELL LYMPHOMA
  3. DOXORUBICIN HCL [Suspect]
     Indication: MANTLE CELL LYMPHOMA
  4. VINCRISTINE [Suspect]
     Indication: MANTLE CELL LYMPHOMA
  5. PREDNISONE [Suspect]
     Indication: MANTLE CELL LYMPHOMA
  6. THALIDOMIDE [Suspect]
     Indication: MANTLE CELL LYMPHOMA
  7. DALTEPARIN SODIUM [Concomitant]
     Indication: PROPHYLAXIS
     Dosage: 5000 UNK, QD
     Route: 058

REACTIONS (1)
  - PULMONARY EMBOLISM [None]
